FAERS Safety Report 16334692 (Version 4)
Quarter: 2019Q3

REPORT INFORMATION
  Report Type: Spontaneous
  Country: GB (occurrence: GB)
  Receive Date: 20190520
  Receipt Date: 20190723
  Transmission Date: 20191004
  Serious: Yes (Other)
  Sender: FDA-Public Use
  Company Number: GB-ASCEND THERAPEUTICS-2067234

PATIENT
  Age: 56 Year
  Sex: Female

DRUGS (24)
  1. ESTROGEL [Suspect]
     Active Substance: ESTRADIOL
  2. GABAPENTIN. [Concomitant]
     Active Substance: GABAPENTIN
     Dates: end: 20190701
  3. CITALOPRAM [Concomitant]
     Active Substance: CITALOPRAM HYDROBROMIDE
     Dates: end: 20190701
  4. HYDROCORTISONE/ MICONAZOLE (HYDROCORTISONE, METRONIDAZOLE, MICONAZOLE) [Concomitant]
  5. BIOTENE (SODIUM FLUOROPHOSPHATE)?ORAL BALANCE DRY MOUTH SALIVA REPLACE [Concomitant]
     Route: 048
     Dates: end: 20190701
  6. OMEPRAZOLE. [Concomitant]
     Active Substance: OMEPRAZOLE
     Dates: end: 20190701
  7. FLUCONAZOLE. [Concomitant]
     Active Substance: FLUCONAZOLE
     Dates: end: 20190617
  8. NYSTATIN. [Concomitant]
     Active Substance: NYSTATIN
     Dates: start: 20190603
  9. FLUCONAZOLE. [Concomitant]
     Active Substance: FLUCONAZOLE
     Dates: end: 20190701
  10. LORATADINE. [Concomitant]
     Active Substance: LORATADINE
     Dates: start: 20190701
  11. AMLODIPINE [Concomitant]
     Active Substance: AMLODIPINE BESYLATE
     Dates: end: 20190701
  12. HYPROMELLOSE (HYPROMELLOSE) (0.3 PERCENT, EYE DROPS)?ONE DROP INTO EAC [Concomitant]
     Dates: end: 20190701
  13. NITROFURANTOIN. [Concomitant]
     Active Substance: NITROFURANTOIN
     Dates: start: 20190613
  14. OESTRODOSE (ESTRADIOL) (GEL) [Suspect]
     Active Substance: ESTRADIOL
  15. OESTROGEL (ESTRADIOL) 0.006 PERCENT GEL?LAST ISSUED 07 MAY 2019 [Concomitant]
  16. CO- CODAMOL (CODEINE PHOSPHATE, PARACETAMOL)?30 MG/500MG TABLETS, ONE [Concomitant]
     Dates: end: 20190701
  17. NITROFURANTOIN. [Concomitant]
     Active Substance: NITROFURANTOIN
     Dates: start: 20190701
  18. LOPERAMIDE?TAKE TWO IMMEDIATELY, THEN ONE AFTER SUBSEQUENT LOOSE STOOL [Concomitant]
     Dates: start: 20190603
  19. LOPERAMIDE [Concomitant]
     Active Substance: LOPERAMIDE
     Dates: start: 20190603
  20. EPIPEN [Concomitant]
     Active Substance: EPINEPHRINE
     Dates: start: 20190510
  21. GABAPENTIN. [Concomitant]
     Active Substance: GABAPENTIN
     Dates: end: 20190701
  22. LEVOTHYROXINE. [Concomitant]
     Active Substance: LEVOTHYROXINE
     Dates: end: 20190701
  23. LEVOTHYROXINE. [Concomitant]
     Active Substance: LEVOTHYROXINE
     Dates: end: 20190701
  24. NYSTATIN. [Concomitant]
     Active Substance: NYSTATIN
     Dates: start: 20190513

REACTIONS (1)
  - Anaphylactic reaction [Recovered/Resolved]
